FAERS Safety Report 20157203 (Version 1)
Quarter: 2021Q4

REPORT INFORMATION
  Report Type: Spontaneous
  Country: US (occurrence: US)
  Receive Date: 20211207
  Receipt Date: 20211207
  Transmission Date: 20220303
  Serious: No
  Sender: FDA-Public Use
  Company Number: US-IBSA PHARMA INC.-2020IBS000217

PATIENT
  Age: 75 Year
  Sex: Female

DRUGS (3)
  1. TIROSINT [Suspect]
     Active Substance: LEVOTHYROXINE SODIUM
     Indication: Product used for unknown indication
     Dosage: UNK
  2. KEYTRUDA [Suspect]
     Active Substance: PEMBROLIZUMAB
     Indication: Product used for unknown indication
  3. LENVIMA [Concomitant]
     Active Substance: LENVATINIB
     Indication: Endometrial neoplasm
     Dosage: 20 MG, QD
     Route: 048

REACTIONS (9)
  - Erythema [Unknown]
  - Myalgia [Unknown]
  - Constipation [Unknown]
  - Arthralgia [Unknown]
  - Fatigue [Unknown]
  - Weight decreased [Unknown]
  - Flushing [Unknown]
  - Pruritus [Unknown]
  - Blood pressure increased [Unknown]
